FAERS Safety Report 9192371 (Version 1)
Quarter: 2013Q1

REPORT INFORMATION
  Report Type: Spontaneous
  Country: IT (occurrence: IT)
  Receive Date: 20130327
  Receipt Date: 20130327
  Transmission Date: 20140127
  Serious: Yes (Other)
  Sender: FDA-Public Use
  Company Number: IT-ELI_LILLY_AND_COMPANY-IT201303001402

PATIENT
  Age: 84 Year
  Sex: Male

DRUGS (5)
  1. CYMBALTA [Suspect]
     Dosage: 60 MG, QD
     Dates: start: 20120506, end: 20120512
  2. PREGABALIN [Concomitant]
     Dosage: 75 MG, QD
     Dates: start: 20120506, end: 20120512
  3. LASIX [Concomitant]
  4. COUMADIN [Concomitant]
     Dosage: 5 MG, UNKNOWN
  5. TACHIDOL [Concomitant]

REACTIONS (2)
  - Generalised oedema [Recovering/Resolving]
  - Abdominal distension [Recovering/Resolving]
